FAERS Safety Report 5758119-9 (Version None)
Quarter: 2008Q2

REPORT INFORMATION
  Report Type: 
  Country: None (occurrence: None)
  Receive Date: 20080603
  Receipt Date: 20080603
  Transmission Date: 20081010
  Serious: Yes (Other)
  Sender: FDA-Public Use
  Company Number: None

PATIENT
  Sex: Female

DRUGS (1)
  1. ULTRAVIST 300 [Suspect]
     Dates: start: 20070516, end: 20080516

REACTIONS (3)
  - OXYGEN SATURATION DECREASED [None]
  - SPEECH DISORDER [None]
  - TONGUE DISORDER [None]
